FAERS Safety Report 8357394-4 (Version None)
Quarter: 2012Q2

REPORT INFORMATION
  Report Type: 
  Country: None (occurrence: None)
  Receive Date: 20120510
  Receipt Date: 20120425
  Transmission Date: 20120825
  Serious: Yes (Death, Hospitalization)
  Sender: FDA-Public Use
  Company Number: ENT 2012-0035

PATIENT
  Age: 79 Year
  Sex: Male

DRUGS (3)
  1. LEVODOPA [Concomitant]
  2. COMTAN [Suspect]
     Indication: DRUG EFFECT DECREASED
     Dosage: ORAL
     Route: 048
  3. SELEGILINE HCL [Concomitant]

REACTIONS (5)
  - APHAGIA [None]
  - RENAL FAILURE ACUTE [None]
  - DEHYDRATION [None]
  - ALTERED STATE OF CONSCIOUSNESS [None]
  - HEPATIC FUNCTION ABNORMAL [None]
